FAERS Safety Report 4436125-4 (Version None)
Quarter: 2004Q3

REPORT INFORMATION
  Report Type: 
  Country: None (occurrence: None)
  Receive Date: 20040728
  Receipt Date: 20040412
  Transmission Date: 20050211
  Serious: No
  Sender: FDA-Public Use
  Company Number: 205850

PATIENT
  Age: 64 Year
  Sex: Male
  Weight: 96.8 kg

DRUGS (1)
  1. RITUXAN [Suspect]
     Indication: NON-HODGKIN'S LYMPHOMA
     Dosage: 790 MG, 1/WEEK, INTRAVENOUS
     Route: 042
     Dates: start: 20040323, end: 20040412

REACTIONS (3)
  - CHILLS [None]
  - URTICARIA [None]
  - VOMITING [None]
